FAERS Safety Report 19447637 (Version 1)
Quarter: 2021Q2

REPORT INFORMATION
  Report Type: Spontaneous
  Country: US (occurrence: US)
  Receive Date: 20210621
  Receipt Date: 20210621
  Transmission Date: 20210717
  Serious: Yes (Hospitalization)
  Sender: FDA-Public Use
  Company Number: None

PATIENT
  Age: 36 Year
  Sex: Male

DRUGS (4)
  1. COSENTYX [Suspect]
     Active Substance: SECUKINUMAB
     Indication: ANKYLOSING SPONDYLITIS
     Dosage: ?          OTHER STRENGTH:150 UGM;?
     Route: 058
     Dates: start: 20200131
  2. CELEBREX [Concomitant]
     Active Substance: CELECOXIB
  3. HYDOCOAPAP [Concomitant]
  4. LOVENOX [Concomitant]
     Active Substance: ENOXAPARIN SODIUM

REACTIONS (2)
  - Spinal operation [None]
  - Post procedural infection [None]

NARRATIVE: CASE EVENT DATE: 20210603
